FAERS Safety Report 10067178 (Version 1)
Quarter: 2014Q2

REPORT INFORMATION
  Report Type: Spontaneous
  Country: US (occurrence: None)
  Receive Date: 20140408
  Receipt Date: 20140408
  Transmission Date: 20141212
  Serious: Yes (Hospitalization, Other)
  Sender: FDA-Public Use
  Company Number: None

PATIENT
  Age: 36 Year
  Sex: Male
  Weight: 99.79 kg

DRUGS (1)
  1. NEXIUM [Suspect]
     Indication: GASTRITIS
     Dosage: 2 PILLS 1ST 2 DAYS, THEN1XDAY?TAKEN BY MOUTH
     Route: 048
     Dates: start: 20140324, end: 20140329

REACTIONS (5)
  - Loss of consciousness [None]
  - Fall [None]
  - Concussion [None]
  - Facial bones fracture [None]
  - Dizziness [None]
